FAERS Safety Report 7793578-1 (Version None)
Quarter: 2011Q4

REPORT INFORMATION
  Report Type: 
  Country: None (occurrence: None)
  Receive Date: 20111003
  Receipt Date: 20110914
  Transmission Date: 20120403
  Serious: Yes (Other)
  Sender: FDA-Public Use
  Company Number: PHHY2011FR85963

PATIENT
  Age: 59 Year
  Sex: Male

DRUGS (1)
  1. METHERGINE [Suspect]

REACTIONS (4)
  - ARTERIOSPASM CORONARY [None]
  - CHEST PAIN [None]
  - CARDIAC ARREST [None]
  - ATRIOVENTRICULAR BLOCK [None]
